FAERS Safety Report 17730386 (Version 1)
Quarter: 2020Q2

REPORT INFORMATION
  Report Type: Spontaneous
  Country: DE (occurrence: DE)
  Receive Date: 20200430
  Receipt Date: 20200430
  Transmission Date: 20200714
  Serious: Yes (Life-Threatening, Hospitalization, Other)
  Sender: FDA-Public Use
  Company Number: DE-JNJFOC-20200430455

PATIENT
  Age: 69 Year
  Sex: Female
  Weight: 60 kg

DRUGS (5)
  1. VAPRINO [RACECADOTRIL] [Suspect]
     Active Substance: RACECADOTRIL
     Indication: DIARRHOEA
     Dosage: ; IN TOTAL
     Route: 048
     Dates: start: 20191230, end: 20191230
  2. RAMIPRIL. [Suspect]
     Active Substance: RAMIPRIL
     Indication: HYPERTENSION
     Dosage: 1-0-0
     Route: 048
     Dates: start: 20190101
  3. BISOPROLOL [Concomitant]
     Active Substance: BISOPROLOL
  4. IMODIUM AKUT [Suspect]
     Active Substance: LOPERAMIDE
     Indication: DIARRHOEA
     Dosage: IN TOTAL
     Route: 065
     Dates: start: 20191230, end: 20191230
  5. L-THYROXIN [Concomitant]
     Active Substance: LEVOTHYROXINE SODIUM

REACTIONS (5)
  - Swelling [Recovered/Resolved]
  - Blood pressure systolic increased [Recovered/Resolved]
  - Pruritus [Recovered/Resolved]
  - Angioedema [Recovered/Resolved]
  - Dysphagia [Recovered/Resolved]

NARRATIVE: CASE EVENT DATE: 20191231
